FAERS Safety Report 23613760 (Version 1)
Quarter: 2024Q1

REPORT INFORMATION
  Report Type: Spontaneous
  Country: BR (occurrence: BR)
  Receive Date: 20240310
  Receipt Date: 20240310
  Transmission Date: 20240410
  Serious: No
  Sender: FDA-Public Use
  Company Number: BR-JNJFOC-20240265906

PATIENT
  Sex: Male

DRUGS (1)
  1. SIMPONI [Suspect]
     Active Substance: GOLIMUMAB
     Indication: Product used for unknown indication
     Dosage: STRENGTH: 50.00 MG / 0.50 ML
     Route: 058

REACTIONS (10)
  - Pain [Unknown]
  - Poor quality sleep [Unknown]
  - Arthralgia [Unknown]
  - Device deployment issue [Unknown]
  - Pain in extremity [Unknown]
  - Oedema peripheral [Unknown]
  - Application site haemorrhage [Unknown]
  - Accidental exposure to product [Unknown]
  - Product dose omission issue [Unknown]
  - Application site erythema [Unknown]

NARRATIVE: CASE EVENT DATE: 20240221
